FAERS Safety Report 6268776-9 (Version None)
Quarter: 2009Q3

REPORT INFORMATION
  Report Type: 
  Country: None (occurrence: None)
  Receive Date: 20090714
  Receipt Date: 20090714
  Transmission Date: 20100115
  Serious: Yes (Life-Threatening, Other)
  Sender: FDA-Public Use
  Company Number: None

PATIENT
  Age: 57 Year
  Sex: Female
  Weight: 79.8331 kg

DRUGS (1)
  1. SYNTHROID [Suspect]
     Indication: HYPOTHYROIDISM
     Dosage: ONE TABLET DAILY PO
     Route: 048
     Dates: start: 20090611, end: 20090712

REACTIONS (12)
  - ANGINA PECTORIS [None]
  - DIZZINESS [None]
  - DYSPEPSIA [None]
  - FATIGUE [None]
  - FLUSHING [None]
  - HYPOAESTHESIA [None]
  - HYPOTENSION [None]
  - MUSCLE SPASMS [None]
  - MUSCULOSKELETAL PAIN [None]
  - NIGHT SWEATS [None]
  - PALPITATIONS [None]
  - PRODUCT SUBSTITUTION ISSUE [None]
